FAERS Safety Report 26086826 (Version 1)
Quarter: 2025Q4

REPORT INFORMATION
  Report Type: Spontaneous
  Country: CO (occurrence: CO)
  Receive Date: 20251125
  Receipt Date: 20251125
  Transmission Date: 20260117
  Serious: Yes (Death, Hospitalization)
  Sender: ROCHE
  Company Number: CO-ROCHE-10000444088

PATIENT
  Age: 77 Year
  Sex: Female
  Weight: 43 kg

DRUGS (1)
  1. ALECTINIB [Suspect]
     Active Substance: ALECTINIB
     Indication: Benign lung neoplasm
     Dosage: FORMULATION: 150MG CAPSULE
     Route: 048
     Dates: start: 20241001

REACTIONS (2)
  - Asphyxia [Fatal]
  - Respiratory arrest [Fatal]

NARRATIVE: CASE EVENT DATE: 20251105
